FAERS Safety Report 5677926-4 (Version None)
Quarter: 2008Q1

REPORT INFORMATION
  Report Type: 
  Country: None (occurrence: None)
  Receive Date: 20080325
  Receipt Date: 20080312
  Transmission Date: 20080703
  Serious: Yes (Other)
  Sender: FDA-Public Use
  Company Number: ES-RANBAXY-2008RR-13762

PATIENT

DRUGS (3)
  1. IBUPROFEN [Suspect]
     Route: 048
  2. ACETAMINOPHEN [Concomitant]
     Dosage: 2 G, UNK
     Route: 048
  3. LYSINE ACETYLSALICYLATE [Concomitant]

REACTIONS (1)
  - BRONCHOSPASM [None]
